FAERS Safety Report 4684161-5 (Version None)
Quarter: 2005Q2

REPORT INFORMATION
  Report Type: 
  Country: None (occurrence: None)
  Receive Date: 20050602
  Receipt Date: 20050418
  Transmission Date: 20051028
  Serious: No
  Sender: FDA-Public Use
  Company Number: 200510783BWH

PATIENT
  Sex: Male

DRUGS (2)
  1. LEVITRA [Suspect]
     Dosage: 10 MG TOTAL DAILY, ORAL
  2. FLOMAX [Concomitant]

REACTIONS (1)
  - NO ADVERSE DRUG EFFECT [None]
